FAERS Safety Report 20031872 (Version 1)
Quarter: 2021Q4

REPORT INFORMATION
  Report Type: Spontaneous
  Country: BR (occurrence: BR)
  Receive Date: 20211103
  Receipt Date: 20211103
  Transmission Date: 20220303
  Serious: Yes (Other)
  Sender: FDA-Public Use
  Company Number: BR-ABBVIE-21K-020-4138402-00

PATIENT

DRUGS (9)
  1. SEVOFLURANE [Suspect]
     Active Substance: SEVOFLURANE
     Indication: General anaesthesia
     Dosage: UP TO 8% IN A MIXTURE OF 33% OXYGEN AND 66% NITROUS OXIDE
     Route: 055
  2. SEVOFLURANE [Suspect]
     Active Substance: SEVOFLURANE
     Dosage: UP TO 2-3% IN 33% OXYGEN AND 66% NITROUS OXIDE
     Route: 055
  3. ALFENTANIL [Concomitant]
     Active Substance: ALFENTANIL
     Indication: Product used for unknown indication
     Route: 042
  4. PROPOFOL [Concomitant]
     Active Substance: PROPOFOL
     Indication: Anaesthesia
     Dosage: 2-4 MCG/KG
     Route: 042
  5. DEXAMETHASONE [Concomitant]
     Active Substance: DEXAMETHASONE
     Indication: Prophylaxis of nausea and vomiting
  6. ONDANSETRON [Concomitant]
     Active Substance: ONDANSETRON
     Indication: Prophylaxis of nausea and vomiting
  7. DIPYRONE [Concomitant]
     Active Substance: DIPYRONE
     Indication: Postoperative analgesia
     Route: 042
  8. TRAMADOL [Concomitant]
     Active Substance: TRAMADOL
     Indication: Postoperative analgesia
     Route: 042
  9. NITROUS OXIDE [Concomitant]
     Active Substance: NITROUS OXIDE
     Indication: Anaesthesia
     Dosage: 66%

REACTIONS (1)
  - Anaesthetic complication neurological [Recovered/Resolved]
